FAERS Safety Report 8662654 (Version 3)
Quarter: 2012Q4

REPORT INFORMATION
  Report Type: 
  Country: US (occurrence: US)
  Receive Date: 20120712
  Receipt Date: 20120829
  Transmission Date: 20130627
  Serious: Yes (Hospitalization)
  Sender: FDA-Public Use
  Company Number: US-ASTRAZENECA-2012SE45334

PATIENT
  Age: 48 Year
  Sex: Female

DRUGS (8)
  1. NEXIUM [Suspect]
     Route: 048
  2. PRILOSEC [Suspect]
     Route: 048
  3. DILTIAZEM ER [Concomitant]
  4. NEURONTIN [Concomitant]
     Dosage: 600 MG 2 DAILY
  5. HCTZ [Concomitant]
  6. ALPRAZOLAM [Concomitant]
     Dosage: 0.5 MG 1 TO 2 AS NEEDED
  7. DICLOFENAC [Concomitant]
     Dosage: 75 MG 2 DAILY
  8. CITALOPRAM [Concomitant]

REACTIONS (9)
  - Gastrooesophageal reflux disease [Unknown]
  - Food poisoning [Unknown]
  - Accident at work [Unknown]
  - Pain [Unknown]
  - Aphagia [Unknown]
  - Dysphagia [Unknown]
  - Regurgitation [Unknown]
  - Nausea [Unknown]
  - Drug dose omission [Unknown]
